FAERS Safety Report 4811578-8 (Version None)
Quarter: 2005Q4

REPORT INFORMATION
  Report Type: 
  Country: None (occurrence: None)
  Receive Date: 20051025
  Receipt Date: 20051010
  Transmission Date: 20060501
  Serious: Yes (Other)
  Sender: FDA-Public Use
  Company Number: 12570

PATIENT
  Age: 43 Year
  Sex: Female
  Weight: 43 kg

DRUGS (9)
  1. ATRACURIUM BESYLATE [Suspect]
  2. PROPOFOL [Suspect]
  3. REMIFENTANIL HYDROCHLORIDE [Suspect]
     Dosage: 100 MICROGRAM
  4. IRON [Concomitant]
  5. ISOFLURANE [Concomitant]
  6. BUPIVACAINE [Concomitant]
  7. HYDROCORTISONE [Concomitant]
  8. LIOTHYRONINE SODIUM [Concomitant]
  9. DEXAMETHASONE [Concomitant]

REACTIONS (4)
  - ADRENOCORTICAL INSUFFICIENCY ACUTE [None]
  - HEART RATE DECREASED [None]
  - HYPOTENSION [None]
  - THERAPY NON-RESPONDER [None]
